FAERS Safety Report 16139962 (Version 1)
Quarter: 2019Q2

REPORT INFORMATION
  Report Type: Spontaneous
  Country: US (occurrence: US)
  Receive Date: 20190401
  Receipt Date: 20190401
  Transmission Date: 20190711
  Serious: No
  Sender: FDA-Public Use
  Company Number: US-TEVA-2019-US-1021977

PATIENT
  Age: 22 Year
  Sex: Female

DRUGS (2)
  1. BIOTIN [Suspect]
     Active Substance: BIOTIN
     Indication: ALOPECIA
     Route: 065
  2. JUNEL [Suspect]
     Active Substance: ETHINYL ESTRADIOL\NORETHINDRONE ACETATE
     Dosage: DOSE STRENGTH:  1 MG/20 MCG
     Route: 065

REACTIONS (1)
  - Drug screen negative [Unknown]
